FAERS Safety Report 6010768 (Version 2)
Quarter: 2023Q1

REPORT INFORMATION
  Report Type: Spontaneous
  Country: BE (occurrence: BE)
  Receive Date: 20060309
  Receipt Date: 20230325
  Transmission Date: 20230417
  Serious: Yes (Death, Life-Threatening)
  Sender: FDA-Public Use
  Company Number: None

PATIENT
  Age: 38 Year
  Sex: Female

DRUGS (13)
  1. RANITIDINE HYDROCHLORIDE [Suspect]
     Active Substance: RANITIDINE HYDROCHLORIDE
     Indication: Prophylaxis
     Dosage: 50 MG, QD (CUMULATIVE DOSE)
     Route: 065
     Dates: start: 2005, end: 2005
  2. CEFAZOLIN SODIUM [Suspect]
     Active Substance: CEFAZOLIN SODIUM
     Indication: Prophylaxis
     Dosage: 4 G, QD (CUMULATIVE DOSE)
     Route: 065
     Dates: start: 2005, end: 2005
  3. LEVOTHYROXINE [Concomitant]
     Active Substance: LEVOTHYROXINE
     Indication: Central hypothyroidism
     Dosage: 125 UG, QD
     Route: 065
  4. PROPOFOL [Concomitant]
     Active Substance: PROPOFOL
     Indication: Prognathism
     Dosage: UNK, ONCE/SINGLE
     Route: 065
  5. PROPOFOL [Concomitant]
     Active Substance: PROPOFOL
     Indication: Osteotomy
  6. SUFENTANIL [Concomitant]
     Active Substance: SUFENTANIL
     Indication: Osteotomy
     Dosage: UNK UNK, SINGLE DOSE FOR SURGERY)
     Route: 065
  7. CISATRACURIUM [Concomitant]
     Active Substance: CISATRACURIUM
     Indication: Osteotomy
     Dosage: SINGLE DOSE FOR SURGERY
     Route: 065
  8. METHYLPREDNISOLONE [Concomitant]
     Active Substance: METHYLPREDNISOLONE
     Indication: Osteotomy
     Dosage: 1G, QD (CUMULATIVE DOSE)
     Route: 065
  9. KETOROLAC [Concomitant]
     Active Substance: KETOROLAC TROMETHAMINE
     Indication: Pain
     Dosage: UNK
     Route: 065
  10. ACETAMINOPHEN [Concomitant]
     Active Substance: ACETAMINOPHEN
     Indication: Pain
     Dosage: UNK
     Route: 065
  11. DEXAMETHASONE [Concomitant]
     Active Substance: DEXAMETHASONE
     Indication: Postoperative care
     Dosage: 20 MG, QD
     Route: 065
  12. DEXAMETHASONE [Concomitant]
     Active Substance: DEXAMETHASONE
     Indication: Osteotomy
     Dosage: 15 MG, UNKNOWN
     Route: 065
  13. DEXAMETHASONE [Concomitant]
     Active Substance: DEXAMETHASONE
     Indication: Prophylaxis

REACTIONS (16)
  - Hypersensitivity [Fatal]
  - Eosinophilic myocarditis [Fatal]
  - Cardiogenic shock [Fatal]
  - Respiratory arrest [Fatal]
  - Dyspnoea [Fatal]
  - Chest pain [Fatal]
  - Sinus tachycardia [Fatal]
  - Cyanosis [Fatal]
  - Jugular vein distension [Fatal]
  - Rales [Fatal]
  - Hypokinesia [Fatal]
  - Pulmonary congestion [Fatal]
  - Sudden death [Fatal]
  - Palpitations [Unknown]
  - Normocytic anaemia [Unknown]
  - Ventricular hypokinesia [Unknown]

NARRATIVE: CASE EVENT DATE: 20050101
